FAERS Safety Report 4882517-9 (Version None)
Quarter: 2005Q4

REPORT INFORMATION
  Report Type: 
  Country: None (occurrence: None)
  Receive Date: 20051201
  Receipt Date: 20050927
  Transmission Date: 20060501
  Serious: No
  Sender: FDA-Public Use
  Company Number: 2005PV002886

PATIENT
  Age: 50 Year
  Sex: Female
  Weight: 97.5234 kg

DRUGS (3)
  1. BYETTA [Suspect]
     Indication: DIABETES MELLITUS NON-INSULIN-DEPENDENT
     Dosage: 5 MCG;BID;SC
     Route: 058
     Dates: start: 20050926
  2. AVANDAMET [Concomitant]
  3. GLUCOTROL XL [Concomitant]

REACTIONS (1)
  - INJECTION SITE PAIN [None]
